FAERS Safety Report 13070092 (Version 2)
Quarter: 2017Q1

REPORT INFORMATION
  Report Type: Report from Study
  Country: ES (occurrence: ES)
  Receive Date: 20161228
  Receipt Date: 20170209
  Transmission Date: 20170428
  Serious: Yes (Death, Hospitalization)
  Sender: FDA-Public Use
  Company Number: ES-CELGENEUS-ESP-2016124373

PATIENT
  Age: 77 Year
  Sex: Male
  Weight: 42 kg

DRUGS (4)
  1. ABRAXANE [Suspect]
     Active Substance: PACLITAXEL
     Dosage: 100MG/M2
     Route: 041
     Dates: start: 20161128, end: 20161216
  2. ABRAXANE [Suspect]
     Active Substance: PACLITAXEL
     Indication: NON-SMALL CELL LUNG CANCER
     Dosage: 100MG/M2
     Route: 041
     Dates: start: 20161003, end: 20161017
  3. CARBOPLATIN. [Suspect]
     Active Substance: CARBOPLATIN
     Indication: NON-SMALL CELL LUNG CANCER
     Dosage: 6MG/ML/DAY
     Route: 041
     Dates: start: 20161003, end: 20161017
  4. CARBOPLATIN. [Suspect]
     Active Substance: CARBOPLATIN
     Dosage: 6MG/ML/DAY
     Route: 041
     Dates: start: 20161128, end: 20161216

REACTIONS (2)
  - Neutropenia [Not Recovered/Not Resolved]
  - Aspiration bronchial [Fatal]

NARRATIVE: CASE EVENT DATE: 20161210
